FAERS Safety Report 15427536 (Version 1)
Quarter: 2018Q3

REPORT INFORMATION
  Report Type: Spontaneous
  Country: US (occurrence: US)
  Receive Date: 20180925
  Receipt Date: 20180925
  Transmission Date: 20181010
  Serious: Yes (Hospitalization)
  Sender: FDA-Public Use
  Company Number: US-PFIZER INC-2018293575

PATIENT
  Age: 65 Year
  Sex: Female
  Weight: 83 kg

DRUGS (4)
  1. CHAPSTICK DUO [Suspect]
     Active Substance: PETROLATUM
     Indication: ORAL DISCOMFORT
     Dosage: UNK UNK, AS NEEDED
     Route: 061
     Dates: start: 2017
  2. CHAPSTICK CLASSIC ORIGINAL [Suspect]
     Active Substance: PETROLATUM
     Dosage: UNK [3 TO 4 X A DAY]
  3. ROSUVASTATIN CALCIUM. [Concomitant]
     Active Substance: ROSUVASTATIN CALCIUM
     Indication: BLOOD CHOLESTEROL ABNORMAL
     Dosage: 20 MG, 1X/DAY ^STARTED 5 YRS^
     Route: 048
  4. CHAPSTICK DUO [Suspect]
     Active Substance: PETROLATUM
     Dosage: UNK [3 OR 4 TIMES A DAY]
     Route: 061
     Dates: end: 201807

REACTIONS (3)
  - Lip exfoliation [Recovered/Resolved]
  - Lip injury [Recovered/Resolved]
  - Lip swelling [Recovered/Resolved]

NARRATIVE: CASE EVENT DATE: 201806
